FAERS Safety Report 6505810-2 (Version None)
Quarter: 2009Q4

REPORT INFORMATION
  Report Type: 
  Country: None (occurrence: None)
  Receive Date: 20091217
  Receipt Date: 20091217
  Transmission Date: 20100525
  Serious: Yes (Hospitalization)
  Sender: FDA-Public Use
  Company Number: None

PATIENT
  Age: 19 Year
  Sex: Male
  Weight: 78.2455 kg

DRUGS (2)
  1. GEODON [Suspect]
     Indication: BIPOLAR I DISORDER
     Dosage: 160MG ONCE A DAY AT NIGH PO
     Route: 048
     Dates: start: 20091119, end: 20091215
  2. LAMICTAL [Concomitant]

REACTIONS (2)
  - DEHYDRATION [None]
  - HYPERHIDROSIS [None]
